FAERS Safety Report 4538119-7 (Version None)
Quarter: 2004Q4

REPORT INFORMATION
  Report Type: 
  Country: None (occurrence: None)
  Receive Date: 20041221
  Receipt Date: 20041210
  Transmission Date: 20050328
  Serious: Yes (Hospitalization)
  Sender: FDA-Public Use
  Company Number: 2004091938

PATIENT
  Age: 84 Year
  Sex: Female
  Weight: 36 kg

DRUGS (9)
  1. LIPITOR [Suspect]
     Indication: HYPERCHOLESTEROLAEMIA
     Dosage: 15 MG (1 IN 1 D), ORAL
     Route: 048
     Dates: start: 20040601, end: 20041008
  2. ALL OTHER THERAPEUTIC PRODUCTS (ALL OTHER THERAPEUTIC PRODUCTS) [Concomitant]
  3. CANDESARTAN CILEXETIL (CANDESARTAN CILEXETIL) [Concomitant]
  4. ALFACALCIDOL (ALFACALCIDOL) [Concomitant]
  5. RABEPRAZOLE SODIUM [Concomitant]
  6. TEPRENONE (TEPRENONE) [Concomitant]
  7. MENATETRENONE (MENATETRENONE) [Concomitant]
  8. GLYCYRRHIZA EXTRACT (GLYCYRRHIZA EXTRACT) [Concomitant]
  9. ALL OTHER THERAPEUTIC PRODUCTS [Concomitant]

REACTIONS (3)
  - BLOOD ALKALINE PHOSPHATASE INCREASED [None]
  - BLOOD CHOLESTEROL INCREASED [None]
  - LIVER DISORDER [None]
